FAERS Safety Report 9645927 (Version 1)
Quarter: 2013Q4

REPORT INFORMATION
  Report Type: Spontaneous
  Country: IT (occurrence: IT)
  Receive Date: 20131025
  Receipt Date: 20131025
  Transmission Date: 20140711
  Serious: Yes (Other)
  Sender: FDA-Public Use
  Company Number: IT-TEVA-438941ISR

PATIENT
  Age: 46 Year
  Sex: Male
  Weight: 65 kg

DRUGS (1)
  1. OLANZAPINA TEVA [Suspect]
     Indication: SCHIZOPHRENIA
     Dosage: 20 MILLIGRAM DAILY;
     Route: 048
     Dates: start: 20130301, end: 20130814

REACTIONS (4)
  - Depressed mood [Recovering/Resolving]
  - Irritability [Recovering/Resolving]
  - Pleurothotonus [Recovering/Resolving]
  - Constipation [Recovering/Resolving]
